FAERS Safety Report 19037204 (Version 1)
Quarter: 2021Q1

REPORT INFORMATION
  Report Type: Spontaneous
  Country: BE (occurrence: BE)
  Receive Date: 20210322
  Receipt Date: 20210322
  Transmission Date: 20210420
  Serious: Yes (Death, Hospitalization, Other)
  Sender: FDA-Public Use
  Company Number: BE-LUPIN PHARMACEUTICALS INC.-2021-03466

PATIENT
  Age: 59 Year
  Sex: Male

DRUGS (21)
  1. VANCOMYCIN [Suspect]
     Active Substance: VANCOMYCIN
     Indication: PSEUDOMONAS INFECTION
     Dosage: UNK
     Route: 065
     Dates: start: 2020
  2. OXACILLIN [Suspect]
     Active Substance: OXACILLIN SODIUM
     Indication: PSEUDOMONAS INFECTION
  3. TEMOCILLIN [Suspect]
     Active Substance: TEMOCILLIN
     Indication: STAPHYLOCOCCAL INFECTION
  4. GANCICLOVIR. [Suspect]
     Active Substance: GANCICLOVIR
     Indication: HERPES SIMPLEX
     Dosage: UNK
     Route: 065
     Dates: start: 2020
  5. CIPROFLOXACIN. [Suspect]
     Active Substance: CIPROFLOXACIN
     Indication: PSEUDOMONAS INFECTION
  6. CEFTAZIDIME. [Suspect]
     Active Substance: CEFTAZIDIME
     Indication: ENTEROBACTER INFECTION
     Dosage: UNK
     Route: 065
     Dates: start: 2020
  7. OXACILLIN [Suspect]
     Active Substance: OXACILLIN SODIUM
     Indication: ENTEROBACTER INFECTION
     Dosage: UNK
     Route: 065
     Dates: start: 2020
  8. CIPROFLOXACIN. [Suspect]
     Active Substance: CIPROFLOXACIN
     Indication: ENTEROBACTER INFECTION
     Dosage: UNK
     Route: 065
     Dates: start: 2020
  9. VANCOMYCIN [Suspect]
     Active Substance: VANCOMYCIN
     Indication: ENTEROBACTER INFECTION
  10. VANCOMYCIN [Suspect]
     Active Substance: VANCOMYCIN
     Indication: STAPHYLOCOCCAL INFECTION
  11. HYDROXYCHLOROQUINE [Suspect]
     Active Substance: HYDROXYCHLOROQUINE
     Indication: COVID-19
     Dosage: UNK
     Route: 065
     Dates: start: 2020
  12. FLUCLOXACILLIN [Suspect]
     Active Substance: FLUCLOXACILLIN
     Indication: PSEUDOMONAS INFECTION
  13. CEFTAZIDIME. [Suspect]
     Active Substance: CEFTAZIDIME
     Indication: STAPHYLOCOCCAL INFECTION
  14. FLUCLOXACILLIN [Suspect]
     Active Substance: FLUCLOXACILLIN
     Indication: STAPHYLOCOCCAL INFECTION
  15. ACYCLOVIR [ACICLOVIR] [Suspect]
     Active Substance: ACYCLOVIR
     Indication: HERPES SIMPLEX
     Dosage: UNK
     Route: 065
     Dates: start: 2020
  16. TEMOCILLIN [Suspect]
     Active Substance: TEMOCILLIN
     Indication: ENTEROBACTER INFECTION
     Dosage: UNK
     Route: 065
     Dates: start: 2020
  17. TEMOCILLIN [Suspect]
     Active Substance: TEMOCILLIN
     Indication: PSEUDOMONAS INFECTION
  18. CIPROFLOXACIN. [Suspect]
     Active Substance: CIPROFLOXACIN
     Indication: STAPHYLOCOCCAL INFECTION
  19. OXACILLIN [Suspect]
     Active Substance: OXACILLIN SODIUM
     Indication: STAPHYLOCOCCAL INFECTION
  20. CEFTAZIDIME. [Suspect]
     Active Substance: CEFTAZIDIME
     Indication: PSEUDOMONAS INFECTION
  21. FLUCLOXACILLIN [Suspect]
     Active Substance: FLUCLOXACILLIN
     Indication: ENTEROBACTER INFECTION
     Dosage: UNK
     Route: 065
     Dates: start: 2020

REACTIONS (3)
  - Liver injury [Not Recovered/Not Resolved]
  - Off label use [Unknown]
  - Toxicity to various agents [Not Recovered/Not Resolved]

NARRATIVE: CASE EVENT DATE: 2020
